FAERS Safety Report 15665160 (Version 1)
Quarter: 2018Q4

REPORT INFORMATION
  Report Type: Spontaneous
  Country: JP (occurrence: JP)
  Receive Date: 20181128
  Receipt Date: 20181128
  Transmission Date: 20190205
  Serious: Yes (Hospitalization, Other)
  Sender: FDA-Public Use
  Company Number: JP-IMPAX LABORATORIES, LLC-2018-IPXL-03923

PATIENT
  Age: 15 Year
  Sex: Female

DRUGS (3)
  1. TANDOSPIRONE [Suspect]
     Active Substance: TANDOSPIRONE
     Dosage: 60 MILLIGRAM, SINGLE
     Route: 065
  2. TANDOSPIRONE [Suspect]
     Active Substance: TANDOSPIRONE
     Indication: ANXIETY
     Dosage: 10 MILLIGRAM, DAILY
     Route: 065
  3. DIVALPROEX SODIUM ER [Suspect]
     Active Substance: DIVALPROEX SODIUM
     Indication: MIGRAINE
     Dosage: 400 MILLIGRAM, DAILY
     Route: 065

REACTIONS (1)
  - Rhabdomyolysis [Recovered/Resolved]
